FAERS Safety Report 21371946 (Version 2)
Quarter: 2022Q4

REPORT INFORMATION
  Report Type: Spontaneous
  Country: US (occurrence: US)
  Receive Date: 20220923
  Receipt Date: 20221005
  Transmission Date: 20230112
  Serious: Yes (Other)
  Sender: FDA-Public Use
  Company Number: US-ACERUSPHRM-2022-US-000548

PATIENT
  Age: 27 Year
  Sex: Male

DRUGS (4)
  1. TESTOSTERONE [Suspect]
     Active Substance: TESTOSTERONE
     Indication: Muscle mass
     Route: 048
  2. NANDROLONE [Suspect]
     Active Substance: NANDROLONE
     Route: 030
  3. URSODIOL [Concomitant]
     Active Substance: URSODIOL
     Indication: Cholestatic liver injury
  4. HYDROXYZINE [Concomitant]
     Active Substance: HYDROXYZINE HYDROCHLORIDE
     Indication: Cholestatic liver injury

REACTIONS (1)
  - Cholestatic liver injury [Unknown]
